FAERS Safety Report 26203921 (Version 1)
Quarter: 2025Q4

REPORT INFORMATION
  Report Type: Spontaneous
  Country: US (occurrence: US)
  Receive Date: 20251226
  Receipt Date: 20251226
  Transmission Date: 20260117
  Serious: Yes (Other)
  Sender: ALEXION PHARMACEUTICALS
  Company Number: US-AstraZeneca-CH-00967183AP

PATIENT
  Age: 30 Year
  Sex: Female

DRUGS (1)
  1. BUDESONIDE\FORMOTEROL [Suspect]
     Active Substance: BUDESONIDE\FORMOTEROL
     Dosage: UNK
     Route: 065

REACTIONS (8)
  - Product dose omission issue [Unknown]
  - Device issue [Unknown]
  - Device delivery system issue [Unknown]
  - Psychotic disorder [Unknown]
  - Bipolar disorder [Unknown]
  - Decreased activity [Unknown]
  - Abulia [Unknown]
  - Daydreaming [Unknown]

NARRATIVE: CASE EVENT DATE: 20251007
